FAERS Safety Report 25065361 (Version 1)
Quarter: 2025Q1

REPORT INFORMATION
  Report Type: Spontaneous
  Country: US (occurrence: US)
  Receive Date: 20250311
  Receipt Date: 20250311
  Transmission Date: 20250408
  Serious: No
  Sender: ELI LILLY AND COMPANY
  Company Number: US-ELI_LILLY_AND_COMPANY-US202503008548

PATIENT
  Age: 40 Year

DRUGS (4)
  1. TRULICITY [Suspect]
     Active Substance: DULAGLUTIDE
     Indication: Glucose tolerance impaired
     Route: 058
  2. TRULICITY [Suspect]
     Active Substance: DULAGLUTIDE
     Indication: Glucose tolerance impaired
     Route: 058
  3. TRULICITY [Suspect]
     Active Substance: DULAGLUTIDE
     Route: 058
  4. TRULICITY [Suspect]
     Active Substance: DULAGLUTIDE
     Route: 058

REACTIONS (4)
  - Off label use [Unknown]
  - Product dose omission issue [Unknown]
  - Incorrect dose administered [Unknown]
  - Cough [Unknown]

NARRATIVE: CASE EVENT DATE: 20250201
